FAERS Safety Report 8768406 (Version 1)
Quarter: 2012Q4

REPORT INFORMATION
  Report Type: 
  Country: CA (occurrence: CA)
  Receive Date: 20120905
  Receipt Date: 20120905
  Transmission Date: 20130627
  Serious: Yes (Other)
  Sender: FDA-Public Use
  Company Number: CA-ROCHE-1110084

PATIENT
  Age: 64 Year
  Sex: Female

DRUGS (3)
  1. LUCENTIS [Suspect]
     Indication: AGE-RELATED MACULAR DEGENERATION
     Route: 050
     Dates: start: 20120112
  2. LUCENTIS [Suspect]
     Route: 050
     Dates: start: 20120301
  3. LUCENTIS [Suspect]
     Route: 050
     Dates: start: 20120816

REACTIONS (9)
  - Fall [Unknown]
  - Balance disorder [Unknown]
  - Concussion [Unknown]
  - Vitreous floaters [Unknown]
  - Eye pain [Unknown]
  - Eye irritation [Unknown]
  - Headache [Unknown]
  - Visual acuity reduced [Unknown]
  - Photophobia [Unknown]
